FAERS Safety Report 8347475-3 (Version None)
Quarter: 2012Q2

REPORT INFORMATION
  Report Type: 
  Country: None (occurrence: None)
  Receive Date: 20120509
  Receipt Date: 20120503
  Transmission Date: 20120825
  Serious: Yes (Hospitalization)
  Sender: FDA-Public Use
  Company Number: BR-US-EMD SERONO, INC.-7124219

PATIENT
  Sex: Male

DRUGS (4)
  1. LOSARTAN POTASSIUM [Concomitant]
     Indication: BLOOD PRESSURE
  2. METFORMIN HCL [Concomitant]
     Indication: DIABETES MELLITUS
  3. REBIF [Suspect]
     Indication: RELAPSING-REMITTING MULTIPLE SCLEROSIS
     Dates: start: 20040401, end: 20120301
  4. DIAMICRON [Concomitant]
     Indication: DIABETES MELLITUS

REACTIONS (5)
  - GENERAL PHYSICAL HEALTH DETERIORATION [None]
  - URINARY TRACT INFECTION [None]
  - MEMORY IMPAIRMENT [None]
  - ESCHAR [None]
  - WEIGHT DECREASED [None]
